FAERS Safety Report 4885733-5 (Version None)
Quarter: 2006Q1

REPORT INFORMATION
  Report Type: 
  Country: None (occurrence: None)
  Receive Date: 20060117
  Receipt Date: 20060105
  Transmission Date: 20060701
  Serious: Yes (Other)
  Sender: FDA-Public Use
  Company Number: GBWYE278505JAN06

PATIENT
  Sex: Female

DRUGS (2)
  1. ETHINYL ESTRADIOL AND LEVONORGESTREL [Suspect]
     Dosage: ORAL
     Route: 048
     Dates: start: 19840101, end: 19980101
  2. ETHINYL ESTRADIOL AND LEVONORGESTREL [Suspect]
     Dosage: ORAL
     Route: 048
     Dates: start: 20010101, end: 20040101

REACTIONS (2)
  - MENIERE'S DISEASE [None]
  - MENSTRUATION IRREGULAR [None]
